FAERS Safety Report 4307459-9 (Version None)
Quarter: 2004Q1

REPORT INFORMATION
  Report Type: 
  Country: None (occurrence: None)
  Receive Date: 20040226
  Receipt Date: 20040220
  Transmission Date: 20041129
  Serious: Yes (Other)
  Sender: FDA-Public Use
  Company Number: GB-JNJFOC-20040204425

PATIENT
  Age: 49 Year
  Sex: Female

DRUGS (6)
  1. REMICADE [Suspect]
     Indication: RHEUMATOID ARTHRITIS
     Dosage: 200 MG
     Dates: start: 20030814
  2. THYROXINE (LEVOTHYROXINE SODIUM) [Concomitant]
  3. LISINOPRIL [Concomitant]
  4. BENDROFLUAZIDE (BENDROFLUAZIDE) [Concomitant]
  5. LOSEC (OMEPRAZOLE) [Concomitant]
  6. LEFLUNOMIDE (LEFLUNOMIDE) [Concomitant]

REACTIONS (2)
  - FALL [None]
  - WRIST FRACTURE [None]
